FAERS Safety Report 17807132 (Version 3)
Quarter: 2022Q2

REPORT INFORMATION
  Report Type: Spontaneous
  Country: FR (occurrence: FR)
  Receive Date: 20200520
  Receipt Date: 20220416
  Transmission Date: 20220721
  Serious: Yes (Disabling, Other)
  Sender: FDA-Public Use
  Company Number: None

PATIENT
  Age: 27 Year
  Sex: Female
  Weight: 60 kg

DRUGS (3)
  1. PROTOPIC [Suspect]
     Active Substance: TACROLIMUS
     Indication: Eczema
     Dosage: 1 DOSAGE FORM
     Route: 003
     Dates: start: 20150101
  2. CHLORQUINALDOL\DIFLUCORTOLONE [Suspect]
     Active Substance: CHLORQUINALDOL\DIFLUCORTOLONE
     Indication: Eczema
     Dosage: 1 DOSAGE FORM
     Route: 003
     Dates: start: 20150101, end: 20190919
  3. DESONIDE [Suspect]
     Active Substance: DESONIDE
     Indication: Eczema
     Dosage: 1 DOSAGE FORM
     Route: 003
     Dates: start: 20150101, end: 20190919

REACTIONS (6)
  - Dermatitis allergic [Recovered/Resolved with Sequelae]
  - Vancomycin infusion reaction [Recovered/Resolved with Sequelae]
  - Vancomycin infusion reaction [Recovered/Resolved with Sequelae]
  - Condition aggravated [Recovered/Resolved]
  - Dermatitis allergic [Recovered/Resolved with Sequelae]
  - Condition aggravated [Recovered/Resolved]

NARRATIVE: CASE EVENT DATE: 20190919
